FAERS Safety Report 16844448 (Version 1)
Quarter: 2019Q3

REPORT INFORMATION
  Report Type: Other
  Country: GB (occurrence: GB)
  Receive Date: 20190924
  Receipt Date: 20190924
  Transmission Date: 20191005
  Serious: Yes (Disabling)
  Sender: FDA-Public Use
  Company Number: GB-APOTEX-2019AP022330

PATIENT
  Age: 33 Year
  Sex: Female

DRUGS (2)
  1. SEROXAT [Suspect]
     Active Substance: PAROXETINE HYDROCHLORIDE
     Indication: ALCOHOL ABUSE
     Dosage: UNK
     Route: 048
     Dates: start: 1999, end: 1999
  2. ALCOHOL. [Interacting]
     Active Substance: ALCOHOL
     Indication: ALCOHOL ABUSE
     Route: 065

REACTIONS (2)
  - Abnormal behaviour [Unknown]
  - Alcohol interaction [Unknown]

NARRATIVE: CASE EVENT DATE: 1999
